FAERS Safety Report 12572387 (Version 2)
Quarter: 2016Q3

REPORT INFORMATION
  Report Type: Report from Study
  Country: BR (occurrence: BR)
  Receive Date: 20160719
  Receipt Date: 20160802
  Transmission Date: 20161109
  Serious: Yes (Hospitalization)
  Sender: FDA-Public Use
  Company Number: PHHY2016BR097372

PATIENT
  Sex: Female
  Weight: 42 kg

DRUGS (5)
  1. FORASEQ [Suspect]
     Active Substance: BUDESONIDE\FORMOTEROL FUMARATE
     Indication: ASTHMA
     Dosage: 2 DF (BUDESONIDE 12 UG, FORMOTEROL FUMARATE 200 UG), QD
     Route: 055
  2. SALBUTAMOL [Concomitant]
     Active Substance: ALBUTEROL
     Indication: ASTHMA
     Dosage: 10 ML, BID
     Route: 065
  3. SALBUTAMOL [Concomitant]
     Active Substance: ALBUTEROL
     Indication: LUNG DISORDER
  4. AEROFRIN [Concomitant]
     Indication: DYSPNOEA
     Dosage: 100 UG, (2 TO 3 TIMES A DAY), SHE INFORMS SHE ONLY USES IT WHEN
     Route: 048
  5. AEROFRIN [Concomitant]
     Indication: ASTHMA

REACTIONS (5)
  - Swelling [Unknown]
  - Dyspnoea [Recovering/Resolving]
  - Irritability [Unknown]
  - Asthma [Recovering/Resolving]
  - Nervousness [Unknown]
